FAERS Safety Report 9521712 (Version 4)
Quarter: 2014Q1

REPORT INFORMATION
  Report Type: Report from Study
  Country: CA (occurrence: CA)
  Receive Date: 20130913
  Receipt Date: 20140110
  Transmission Date: 20141002
  Serious: Yes (Death, Other)
  Sender: FDA-Public Use
  Company Number: PHHY2013CA101100

PATIENT
  Sex: Female

DRUGS (2)
  1. SANDOSTATIN LAR [Suspect]
     Indication: LARGE INTESTINAL OBSTRUCTION
     Dosage: 20 MG, QMO
     Route: 030
     Dates: start: 20130612
  2. SANDOSTATIN LAR [Suspect]
     Dosage: 20 MG, QMO
     Route: 030
     Dates: start: 20131106, end: 20131204

REACTIONS (4)
  - Death [Fatal]
  - Urinary tract infection [Unknown]
  - Body temperature increased [Unknown]
  - Asthenia [Unknown]
